FAERS Safety Report 10234063 (Version 2)
Quarter: 2014Q2

REPORT INFORMATION
  Report Type: Spontaneous
  Country: US (occurrence: US)
  Receive Date: 20140612
  Receipt Date: 20140618
  Transmission Date: 20141212
  Serious: Yes (Hospitalization)
  Sender: FDA-Public Use
  Company Number: US-BAXTER-2014BAX029503

PATIENT
  Age: 9 Year
  Sex: Male
  Weight: 57 kg

DRUGS (4)
  1. ADVATE [Suspect]
     Indication: FACTOR VIII DEFICIENCY
     Route: 042
     Dates: start: 2003, end: 2003
  2. ADVATE [Suspect]
     Dosage: 1400-1500 UNITS
     Route: 042
     Dates: start: 201003, end: 201003
  3. RECOMBINATE [Suspect]
     Indication: FACTOR VIII DEFICIENCY
     Route: 042
     Dates: start: 2000, end: 201404
  4. XYNTHA [Suspect]
     Indication: PRODUCT USED FOR UNKNOWN INDICATION
     Route: 065

REACTIONS (15)
  - Haemarthrosis [Unknown]
  - Joint swelling [Unknown]
  - Feeling hot [Unknown]
  - Haemorrhage [Unknown]
  - Joint swelling [Unknown]
  - Pyrexia [Recovered/Resolved]
  - Lethargy [Recovered/Resolved]
  - Muscular weakness [Recovered/Resolved]
  - Malaise [Recovered/Resolved]
  - Dark circles under eyes [Unknown]
  - Feeling abnormal [Unknown]
  - Peripheral swelling [Unknown]
  - Skin discolouration [Unknown]
  - Feeling hot [Unknown]
  - Arthralgia [Unknown]
